FAERS Safety Report 4297455-2 (Version None)
Quarter: 2004Q1

REPORT INFORMATION
  Report Type: 
  Country: None (occurrence: None)
  Receive Date: 20040213
  Receipt Date: 20040205
  Transmission Date: 20041129
  Serious: Yes (Hospitalization)
  Sender: FDA-Public Use
  Company Number: 04P-163-0246262-00

PATIENT
  Age: 45 Year
  Sex: Male
  Weight: 93.8946 kg

DRUGS (6)
  1. KALETRA [Suspect]
     Indication: HIV INFECTION
     Dosage: 3 TABLETS, 2 IN 1 D
     Dates: start: 20021010
  2. METOPROLOL (METOPROLOL) [Suspect]
     Dosage: 50 MG, 2 IN 1 D
     Dates: start: 20031205, end: 20031224
  3. ACETYLSALICYLIC ACID SRT [Concomitant]
  4. TENOFOVIR [Concomitant]
  5. LEXAPRO [Concomitant]
  6. TRAZODONE HCL [Concomitant]

REACTIONS (6)
  - ATRIOVENTRICULAR BLOCK [None]
  - DIZZINESS [None]
  - DRUG INTERACTION [None]
  - DYSPNOEA [None]
  - SINUS BRADYCARDIA [None]
  - SYNCOPE [None]
